FAERS Safety Report 19104165 (Version 1)
Quarter: 2021Q2

REPORT INFORMATION
  Report Type: Spontaneous
  Country: US (occurrence: US)
  Receive Date: 20210407
  Receipt Date: 20210407
  Transmission Date: 20210717
  Serious: No
  Sender: FDA-Public Use
  Company Number: US-MATRIXX INITIATIVES, INC.-2109021

PATIENT
  Age: 25 Year
  Sex: Male
  Weight: 54.55 kg

DRUGS (2)
  1. VITAMIN C [Concomitant]
     Active Substance: ASCORBIC ACID
  2. ZICAM COLD REMEDY LOZENGES [Suspect]
     Active Substance: HOMEOPATHICS\ZINC ACETATE\ZINC GLUCONATE
     Indication: OROPHARYNGEAL PAIN
     Route: 048
     Dates: start: 20210404, end: 20210406

REACTIONS (2)
  - Anosmia [None]
  - Dysgeusia [None]
